FAERS Safety Report 15475835 (Version 1)
Quarter: 2018Q4

REPORT INFORMATION
  Report Type: Report from Study
  Country: None (occurrence: US)
  Receive Date: 20181009
  Receipt Date: 20181009
  Transmission Date: 20190205
  Serious: Yes (Hospitalization, Other)
  Sender: FDA-Public Use
  Company Number: US-ABBVIE-18K-163-2507665-00

PATIENT
  Age: 41 Year
  Sex: Male
  Weight: 90.8 kg

DRUGS (4)
  1. METHOTREXATE. [Concomitant]
     Active Substance: METHOTREXATE
     Indication: COLITIS ULCERATIVE
  2. HUMIRA [Suspect]
     Active Substance: ADALIMUMAB
     Indication: CROHN^S DISEASE
     Route: 058
     Dates: start: 201608, end: 201807
  3. HUMIRA [Suspect]
     Active Substance: ADALIMUMAB
     Indication: COLITIS ULCERATIVE
  4. FOLIC ACID. [Concomitant]
     Active Substance: FOLIC ACID
     Indication: RHEUMATOID ARTHRITIS

REACTIONS (4)
  - Gastrointestinal lymphoma [Not Recovered/Not Resolved]
  - Rectal haemorrhage [Recovered/Resolved]
  - Colon cancer [Not Recovered/Not Resolved]
  - Neuroendocrine tumour [Recovered/Resolved]

NARRATIVE: CASE EVENT DATE: 201807
